FAERS Safety Report 7772819-0 (Version None)
Quarter: 2011Q3

REPORT INFORMATION
  Report Type: 
  Country: None (occurrence: None)
  Receive Date: 20110922
  Receipt Date: 20110413
  Transmission Date: 20111222
  Serious: Yes (Other)
  Sender: FDA-Public Use
  Company Number: US-ASTRAZENECA-2009SE33144

PATIENT
  Age: 20 Year
  Sex: Female
  Weight: 97.5 kg

DRUGS (7)
  1. GEODON [Concomitant]
     Dates: start: 20020101, end: 20040101
  2. SEROQUEL [Suspect]
     Indication: INSOMNIA
     Route: 048
     Dates: start: 20020101, end: 20050101
  3. ABILIFY [Concomitant]
     Dates: start: 20020101, end: 20040101
  4. TOPAMAX [Concomitant]
     Dosage: 25 TO 300 MG
     Route: 048
     Dates: start: 20040210
  5. PAXIL CR [Concomitant]
     Route: 048
     Dates: start: 20020905
  6. SEROQUEL [Suspect]
     Dosage: 25 TO 200 MG
     Route: 048
     Dates: start: 20021014
  7. GEODON [Concomitant]
     Route: 048
     Dates: start: 20020903

REACTIONS (3)
  - TYPE 1 DIABETES MELLITUS [None]
  - WEIGHT INCREASED [None]
  - DIABETIC KETOACIDOSIS [None]
